FAERS Safety Report 10937209 (Version 2)
Quarter: 2015Q2

REPORT INFORMATION
  Report Type: Spontaneous
  Country: US (occurrence: US)
  Receive Date: 20150321
  Receipt Date: 20150525
  Transmission Date: 20150821
  Serious: Yes (Hospitalization, Other)
  Sender: FDA-Public Use
  Company Number: US-JNJFOC-20130607622

PATIENT
  Sex: Male

DRUGS (5)
  1. TOPAMAX [Suspect]
     Active Substance: TOPIRAMATE
     Indication: PRODUCT USED FOR UNKNOWN INDICATION
     Dosage: 30 MG IN AM, 45 MG AT HS, COMPOUND TO 10MG/ML SOLUTION AND 4.5ML BID GIVEN.
     Route: 048
  2. SABRIL [Suspect]
     Active Substance: VIGABATRIN
     Indication: INFANTILE SPASMS
     Dosage: TAKE ON AND HALF SACHETS TWICE DAILY
     Route: 048
     Dates: start: 201208
  3. SABRIL [Suspect]
     Active Substance: VIGABATRIN
     Indication: INFANTILE SPASMS
     Route: 048
     Dates: start: 201210
  4. TOPAMAX [Suspect]
     Active Substance: TOPIRAMATE
     Indication: PRODUCT USED FOR UNKNOWN INDICATION
     Dosage: WITH ADDITIONAL DOSING REGIMEN OF 10 MG TABLET
     Route: 048
  5. CLONAZEPAM. [Concomitant]
     Active Substance: CLONAZEPAM
     Indication: PRODUCT USED FOR UNKNOWN INDICATION
     Route: 048

REACTIONS (5)
  - Visual impairment [Unknown]
  - Somnolence [Unknown]
  - Wrong technique in drug usage process [Unknown]
  - Seizure [Unknown]
  - Product use issue [Unknown]
